FAERS Safety Report 11131460 (Version 2)
Quarter: 2015Q2

REPORT INFORMATION
  Report Type: Spontaneous
  Country: NL (occurrence: NL)
  Receive Date: 20150522
  Receipt Date: 20150602
  Transmission Date: 20150821
  Serious: Yes (Other)
  Sender: FDA-Public Use
  Company Number: NL-MYLANLABS-2015M1016924

PATIENT

DRUGS (10)
  1. CARBAMAZEPINE. [Interacting]
     Active Substance: CARBAMAZEPINE
     Indication: EPILEPSY
     Dosage: 200 MG, BID
     Route: 048
  2. VALPROATE [Interacting]
     Active Substance: VALPROATE SODIUM
     Indication: EPILEPSY
     Dosage: 1000 MG, QD
     Route: 048
  3. VALPROATE [Interacting]
     Active Substance: VALPROATE SODIUM
     Dosage: 1500 MG, QD
     Route: 048
  4. RIFAMPIN. [Interacting]
     Active Substance: RIFAMPIN
     Dosage: 450 MG, BID
     Route: 048
  5. CARBAMAZEPINE. [Interacting]
     Active Substance: CARBAMAZEPINE
     Dosage: 200 MG, TID
     Route: 048
  6. CLONAZEPAM. [Interacting]
     Active Substance: CLONAZEPAM
     Dosage: 1 MG, BID
     Route: 042
  7. RIFAMPIN. [Suspect]
     Active Substance: RIFAMPIN
     Indication: DEVICE RELATED INFECTION
     Dosage: 450 MG, BID
     Route: 042
  8. CARBAMAZEPINE. [Interacting]
     Active Substance: CARBAMAZEPINE
     Dosage: 400 MG, BID
     Route: 048
  9. CLONAZEPAM. [Interacting]
     Active Substance: CLONAZEPAM
     Indication: EPILEPSY
     Dosage: 0.5 MG, BID
     Route: 048
  10. FLUCLOXACILLIN [Concomitant]
     Active Substance: FLUCLOXACILLIN
     Indication: DEVICE RELATED INFECTION
     Dosage: 1200 MG CONTINUOUS
     Route: 042

REACTIONS (2)
  - Drug interaction [Unknown]
  - Seizure [Unknown]
